FAERS Safety Report 7186643-3 (Version None)
Quarter: 2010Q4

REPORT INFORMATION
  Report Type: 
  Country: None (occurrence: None)
  Receive Date: 20101222
  Receipt Date: 20101213
  Transmission Date: 20110411
  Serious: Yes (Other)
  Sender: FDA-Public Use
  Company Number: AT-GILEAD-E2B_00000989

PATIENT
  Age: 70 Year
  Sex: Female
  Weight: 94 kg

DRUGS (1)
  1. AMBRISENTAN [Suspect]
     Indication: PRODUCT USED FOR UNKNOWN INDICATION
     Dosage: 1TAB IN THE MORNING
     Route: 065

REACTIONS (2)
  - SKIN CANCER [None]
  - WEIGHT INCREASED [None]
